FAERS Safety Report 10258621 (Version 1)
Quarter: 2014Q2

REPORT INFORMATION
  Report Type: Other
  Country: JP (occurrence: JP)
  Receive Date: 20140625
  Receipt Date: 20140625
  Transmission Date: 20141212
  Serious: Yes (Other)
  Sender: FDA-Public Use
  Company Number: JP-BRISTOL-MYERS SQUIBB COMPANY-21085279

PATIENT
  Age: 46 Year
  Sex: Male

DRUGS (3)
  1. VEPESID [Suspect]
  2. IFOSFAMIDE [Suspect]
  3. CISPLATIN [Suspect]

REACTIONS (2)
  - Acute respiratory distress syndrome [Recovering/Resolving]
  - Tumour lysis syndrome [Unknown]
